FAERS Safety Report 7012266-2 (Version None)
Quarter: 2010Q3

REPORT INFORMATION
  Report Type: 
  Country: None (occurrence: None)
  Receive Date: 20100924
  Receipt Date: 20100913
  Transmission Date: 20110219
  Serious: Yes (Hospitalization)
  Sender: FDA-Public Use
  Company Number: PL-JNJFOC-20100904921

PATIENT
  Age: 20 Year
  Sex: Male

DRUGS (3)
  1. INFLIXIMAB, RECOMBINANT [Suspect]
     Indication: CROHN'S DISEASE
     Route: 042
  2. INFLIXIMAB, RECOMBINANT [Suspect]
     Route: 042
  3. INFLIXIMAB, RECOMBINANT [Suspect]
     Route: 042

REACTIONS (7)
  - ABDOMINAL PAIN LOWER [None]
  - ANAL FISTULA [None]
  - COMPRESSION FRACTURE [None]
  - GENERAL PHYSICAL HEALTH DETERIORATION [None]
  - PERIRECTAL ABSCESS [None]
  - PYREXIA [None]
  - WEIGHT DECREASED [None]
